FAERS Safety Report 17605220 (Version 1)
Quarter: 2020Q1

REPORT INFORMATION
  Report Type: Spontaneous
  Country: US (occurrence: US)
  Receive Date: 20200331
  Receipt Date: 20200331
  Transmission Date: 20200409
  Serious: No
  Sender: FDA-Public Use
  Company Number: US-ASTRAZENECA-2020SE43784

PATIENT
  Age: 74 Year
  Sex: Male
  Weight: 91.6 kg

DRUGS (60)
  1. LEVOTHYROXINE. [Concomitant]
     Active Substance: LEVOTHYROXINE
     Indication: HYPOTHYROIDISM
     Dosage: 50 UG, 1X/DAY (50MCG EARLY IN THE MORNING)/(1 TAB EARLY A.M ON EMPTY STOMACH ONCE A DAY)
     Route: 065
     Dates: start: 2010
  2. CENTRUM SILVER [ASCORBIC ACID;BETACAROTENE;BIOTIN;CALCIUM;CHROMIUM;COL [Concomitant]
     Dosage: 1 DF, 1X/DAY (AFTER BREAKFAST)
     Route: 065
  3. CLINDAMYCIN HYDROCHLORIDE. [Concomitant]
     Active Substance: CLINDAMYCIN HYDROCHLORIDE
     Indication: DIARRHOEA HAEMORRHAGIC
     Dosage: C-DIFF
     Route: 065
  4. HYDROCHLOROTHIAZIDE. [Concomitant]
     Active Substance: HYDROCHLOROTHIAZIDE
     Indication: ABDOMINAL PAIN UPPER
     Dosage: 250 MG
     Route: 065
  5. LEVOFLOXACIN. [Concomitant]
     Active Substance: LEVOFLOXACIN
     Indication: INSOMNIA
     Dosage: 100 MG, UNK
     Route: 065
  6. RANITIDINE. [Concomitant]
     Active Substance: RANITIDINE
     Indication: ABDOMINAL DISCOMFORT
     Dosage: UNK
     Route: 065
  7. RANITIDINE. [Concomitant]
     Active Substance: RANITIDINE
     Indication: DIARRHOEA
     Dosage: UNK
     Route: 065
  8. NEXIUM 24HR [Suspect]
     Active Substance: ESOMEPRAZOLE MAGNESIUM
     Route: 048
  9. ATENOLOL. [Suspect]
     Active Substance: ATENOLOL
     Indication: HAEMOGLOBIN ABNORMAL
     Dosage: UNK
     Route: 048
  10. NEXIUM [Concomitant]
     Active Substance: ESOMEPRAZOLE MAGNESIUM
     Indication: BARRETT^S OESOPHAGUS
     Dosage: 22.5 MG, 1X/DAY (22.5MG CAPSULE IN THE MORNING BEFORE BREAKFAST)
     Route: 048
     Dates: start: 2014
  11. VITAMIN C [Concomitant]
     Active Substance: ASCORBIC ACID
     Dosage: 1000 MG, 1X/DAY (AFTER BREAKFAST)
     Route: 065
  12. TURMERIC [CURCUMA LONGA RHIZOME] [Concomitant]
     Active Substance: HERBALS\TURMERIC
     Dosage: 500 MG, 1X/DAY (AT BREAKFAST)
     Route: 065
  13. TYLENOL 8HR [Concomitant]
     Active Substance: ACETAMINOPHEN
     Indication: ARTHRITIS
     Dosage: 1950 MG, AS NEEDED (650 MG CAPLETS (3))
     Route: 065
  14. LACTAID FAST ACT [Concomitant]
     Active Substance: LACTASE
     Dosage: 9000 IU, AS NEEDED (ONLY PRIOR TO DAIRY)
     Route: 065
  15. AMLODIPINE BESYLATE. [Concomitant]
     Active Substance: AMLODIPINE BESYLATE
     Indication: TACHYCARDIA
     Dosage: 2.5 MG, UNK
     Route: 065
  16. DIPEN [DILTIAZEM HYDROCHLORIDE] [Concomitant]
     Indication: DIZZINESS
     Dosage: 2.5 MG, UNK
     Route: 065
  17. DIPEN [DILTIAZEM HYDROCHLORIDE] [Concomitant]
     Indication: NAUSEA
     Dosage: 2.5 MG, UNK
     Route: 065
  18. FERROUS SULFATE. [Concomitant]
     Active Substance: FERROUS SULFATE
     Dosage: 324 MG, 1X/DAY
     Route: 065
     Dates: start: 20200124
  19. LACTAID FAST ACT [Concomitant]
     Active Substance: LACTASE
     Dosage: UNK
     Dates: start: 2000
  20. FUROSEMIDE. [Concomitant]
     Active Substance: FUROSEMIDE
     Indication: SWELLING
     Dosage: 20MG. G TAB. A.M.
     Route: 065
     Dates: start: 20200107
  21. LEVOFLOXACIN. [Concomitant]
     Active Substance: LEVOFLOXACIN
     Indication: MUSCULAR WEAKNESS
     Dosage: 100 MG, UNK
     Route: 065
  22. LEVOFLOXACIN. [Concomitant]
     Active Substance: LEVOFLOXACIN
     Indication: RESTLESS LEGS SYNDROME
     Dosage: 100 MG, UNK
     Route: 065
  23. MESALAMINE. [Concomitant]
     Active Substance: MESALAMINE
     Indication: DIARRHOEA
     Dosage: 1200 MG. 4 AT-A-TIME WITH SUPPER MEAL
     Route: 065
     Dates: start: 20180323, end: 20180828
  24. PROBIOTIC ACIDOPHILUS [LACTOBACILLUS ACIDOPHILUS] [Concomitant]
     Dosage: 5 MG, DAILY (W/ BREAK 40MG)
     Route: 065
     Dates: start: 20180915
  25. NAPROXEN. [Concomitant]
     Active Substance: NAPROXEN
     Indication: ARTHRALGIA
     Dosage: 500 MG, 2X/DAY (TWICE DAILY W/MEAL)
     Route: 065
     Dates: start: 20200107
  26. FEXOFENADINE [Concomitant]
     Active Substance: FEXOFENADINE HYDROCHLORIDE
     Indication: ABDOMINAL PAIN UPPER
     Dosage: UNK
     Route: 065
  27. FLAGYL [METRONIDAZOLE BENZOATE] [Concomitant]
     Active Substance: METRONIDAZOLE BENZOATE
     Indication: DIARRHOEA
     Dosage: 250 MG
     Route: 065
  28. LIPITOR [Concomitant]
     Active Substance: ATORVASTATIN CALCIUM
     Indication: DIARRHOEA
     Dosage: UNK
     Route: 065
  29. LEVOFLOXACIN. [Concomitant]
     Active Substance: LEVOFLOXACIN
     Indication: MUSCLE SPASMS
     Dosage: 100 MG, UNK
     Route: 065
  30. ATENOLOL. [Suspect]
     Active Substance: ATENOLOL
     Indication: HEART RATE DECREASED
     Dosage: UNK
     Route: 048
  31. XELJANZ [Suspect]
     Active Substance: TOFACITINIB CITRATE
     Indication: COLITIS ULCERATIVE
     Dosage: 10 MG
     Route: 065
     Dates: start: 20190919, end: 2019
  32. XELJANZ [Suspect]
     Active Substance: TOFACITINIB CITRATE
     Indication: COLITIS ULCERATIVE
     Dosage: 0.5DF, 2X/DAY (CUT IN HALF AND TAKE 5MG IN THE MORNING AND 5MG IN THE EVENING)
     Route: 065
  33. PREDNISONE. [Suspect]
     Active Substance: PREDNISONE
     Indication: COLITIS ULCERATIVE
     Route: 065
     Dates: start: 20180915
  34. PROBIOTIC ACIDOPHILUS [LACTOBACILLUS ACIDOPHILUS] [Concomitant]
     Dosage: UNK
     Dates: start: 2000
  35. CIPROFLOXACIN. [Concomitant]
     Active Substance: CIPROFLOXACIN
     Indication: MYALGIA
     Dosage: UNK
     Route: 065
  36. FEXOFENADINE [Concomitant]
     Active Substance: FEXOFENADINE HYDROCHLORIDE
     Indication: ABDOMINAL PAIN
     Dosage: UNK
     Route: 065
  37. HYDROCHLOROTHIAZIDE. [Concomitant]
     Active Substance: HYDROCHLOROTHIAZIDE
     Indication: DIARRHOEA
     Dosage: 250 MG
     Route: 065
  38. DIPEN [DILTIAZEM HYDROCHLORIDE] [Concomitant]
     Indication: DIZZINESS
     Dosage: 2.5 MG, UNK
     Route: 065
  39. ROCEPHINE [Concomitant]
     Active Substance: CEFTRIAXONE SODIUM
     Indication: RASH PRURITIC
     Dosage: UNK
     Route: 065
  40. XELJANZ [Suspect]
     Active Substance: TOFACITINIB CITRATE
     Indication: COLITIS ULCERATIVE
     Dosage: 10 MG, DAILY (TAKE HALF OF THE 10MG IN THE MORNING AND AT NIGHT FOR A TOTAL OF 10MG PER DAY)
     Route: 065
     Dates: start: 20191121
  41. FINASTERIDE. [Concomitant]
     Active Substance: FINASTERIDE
     Indication: PROSTATOMEGALY
     Dosage: 5 MG, 1X/DAY (5MG BY MOUTH AT BEDTIME)
     Route: 065
     Dates: start: 2016
  42. VITAMIN B12 [Concomitant]
     Active Substance: CYANOCOBALAMIN
     Dosage: 3000 UG, 1X/DAY (GUMMIES 3 AFTER BREAKFAST)
     Dates: start: 2014
  43. PROBIOTIC 10 [Concomitant]
     Active Substance: DIETARY SUPPLEMENT\PROBIOTICS
     Dosage: 2 DF, 1X/DAY (AT BREAKFAST)
     Route: 065
     Dates: start: 2005
  44. CALMOSEPTINE [MENTHOL;ZINC OXIDE] [Concomitant]
     Indication: DERMATITIS CONTACT
     Dosage: UNK, AS NEEDED (0.44 %-20.625%)
     Route: 061
  45. DESITIN [CHLOROXYLENOL;HEXACHLOROPHENE] [Concomitant]
     Indication: RECTAL HAEMORRHAGE
     Dosage: UNK, AS NEEDED
     Dates: start: 2018
  46. HYDROCHLOROTHIAZIDE. [Concomitant]
     Active Substance: HYDROCHLOROTHIAZIDE
     Indication: ABDOMINAL PAIN
     Dosage: 250 MG
     Route: 065
  47. LOSARTAN POTASSIUM. [Concomitant]
     Active Substance: LOSARTAN POTASSIUM
     Indication: DIARRHOEA
     Dosage: 100 MG, UNK
     Route: 065
  48. NEOSPORIN [Concomitant]
     Active Substance: BACITRACIN ZINC\NEOMYCIN SULFATE\POLYMYXIN B SULFATE
     Indication: ERYTHEMA
     Route: 065
  49. PROZAC [Suspect]
     Active Substance: FLUOXETINE HYDROCHLORIDE
     Indication: STRESS
     Route: 048
     Dates: start: 20190310
  50. TURMERIC [CURCUMA LONGA RHIZOME] [Concomitant]
     Active Substance: HERBALS\TURMERIC
     Dosage: UNK, AS NEEDED
     Route: 065
  51. VITAMIN B12 [Concomitant]
     Active Substance: CYANOCOBALAMIN
     Dosage: UNK, DAILY
     Dates: start: 2014
  52. LESCOL [Concomitant]
     Active Substance: FLUVASTATIN SODIUM
     Indication: ABDOMINAL PAIN UPPER
     Dosage: 250 MG, UNK
     Route: 065
  53. PANTOPRAZOLE SODIUM. [Concomitant]
     Active Substance: PANTOPRAZOLE SODIUM
     Indication: ABDOMINAL DISCOMFORT
     Dosage: UNK
     Route: 065
  54. PANTOPRAZOLE SODIUM. [Concomitant]
     Active Substance: PANTOPRAZOLE SODIUM
     Indication: DIARRHOEA
     Dosage: UNK
     Route: 065
  55. DIPEN [DILTIAZEM HYDROCHLORIDE] [Concomitant]
     Indication: TINNITUS
     Dosage: 2.5 MG, UNK
     Route: 065
  56. PROZAC [Suspect]
     Active Substance: FLUOXETINE HYDROCHLORIDE
     Indication: ANXIETY
     Route: 048
     Dates: start: 20190310
  57. PROBIOTIC 10 [Concomitant]
     Active Substance: DIETARY SUPPLEMENT\PROBIOTICS
     Dosage: UNK
     Dates: start: 2000
  58. LIPITOR [Concomitant]
     Active Substance: ATORVASTATIN CALCIUM
     Indication: ABDOMINAL PAIN UPPER
     Dosage: UNK
     Route: 065
  59. LIPITOR [Concomitant]
     Active Substance: ATORVASTATIN CALCIUM
     Indication: HAEMOGLOBIN ABNORMAL
     Dosage: UNK
     Route: 065
  60. POLYSPORIN [Concomitant]
     Active Substance: BACITRACIN ZINC\POLYMYXIN B SULFATE
     Route: 065

REACTIONS (10)
  - Weight increased [Not Recovered/Not Resolved]
  - Haemoglobin decreased [Recovered/Resolved]
  - Red blood cell count decreased [Recovering/Resolving]
  - Neutrophil count increased [Unknown]
  - Haematocrit decreased [Recovered/Resolved]
  - White blood cell count increased [Recovering/Resolving]
  - Monocyte percentage increased [Unknown]
  - Monocyte count increased [Unknown]
  - Lymphocyte count decreased [Recovered/Resolved]
  - Swelling [Not Recovered/Not Resolved]

NARRATIVE: CASE EVENT DATE: 201910
